FAERS Safety Report 4654804-0 (Version None)
Quarter: 2005Q2

REPORT INFORMATION
  Report Type: 
  Country: None (occurrence: None)
  Receive Date: 20050506
  Receipt Date: 20050428
  Transmission Date: 20051028
  Serious: Yes (Disabling)
  Sender: FDA-Public Use
  Company Number: US-ROCHE-403480

PATIENT
  Age: 4 Year
  Sex: Male

DRUGS (2)
  1. ACCUTANE [Suspect]
  2. ORAL CONTRACEPTIVE PILL [Concomitant]
     Indication: CONTRACEPTION

REACTIONS (8)
  - ATTENTION DEFICIT/HYPERACTIVITY DISORDER [None]
  - CONGENITAL ANOMALY [None]
  - CONGENITAL NEUROLOGICAL DISORDER [None]
  - DEVELOPMENTAL DELAY [None]
  - LIVE BIRTH [None]
  - PREGNANCY [None]
  - SENSORY DISTURBANCE [None]
  - TREMOR NEONATAL [None]
